FAERS Safety Report 13646507 (Version 2)
Quarter: 2017Q3

REPORT INFORMATION
  Report Type: Spontaneous
  Country: US (occurrence: US)
  Receive Date: 20170613
  Receipt Date: 20170725
  Transmission Date: 20171127
  Serious: Yes (Other)
  Sender: FDA-Public Use
  Company Number: US-PFIZER INC-2017252621

PATIENT
  Age: 47 Year
  Sex: Female
  Weight: 90.72 kg

DRUGS (3)
  1. GABAPENTIN. [Suspect]
     Active Substance: GABAPENTIN
     Indication: PAIN IN EXTREMITY
     Dosage: 600 MG, 3X/DAY
     Route: 048
     Dates: start: 2013, end: 2013
  2. GABAPENTIN. [Suspect]
     Active Substance: GABAPENTIN
     Indication: NEURALGIA
  3. GABAPENTIN. [Suspect]
     Active Substance: GABAPENTIN
     Indication: ABDOMINAL PAIN LOWER
     Dosage: 600MG TABLETS, BY MOUTH, THREE TIMES PER DAY
     Route: 048
     Dates: start: 2015, end: 2015

REACTIONS (7)
  - Product use in unapproved indication [Unknown]
  - Swollen tongue [Unknown]
  - Mental status changes [Unknown]
  - Pain [Unknown]
  - Hypersensitivity [Recovered/Resolved]
  - Tongue disorder [Recovered/Resolved]
  - Neurological symptom [Recovered/Resolved]

NARRATIVE: CASE EVENT DATE: 2015
